FAERS Safety Report 24113901 (Version 2)
Quarter: 2025Q2

REPORT INFORMATION
  Report Type: Spontaneous
  Country: CA (occurrence: CA)
  Receive Date: 20240720
  Receipt Date: 20250514
  Transmission Date: 20250716
  Serious: Yes (Death)
  Sender: CELLTRION
  Company Number: CA-CELLTRION INC.-2022CA022572

PATIENT

DRUGS (1)
  1. TRUXIMA [Suspect]
     Active Substance: RITUXIMAB-ABBS
     Indication: Vasculitis
     Route: 042
     Dates: start: 20220426, end: 20230410

REACTIONS (3)
  - Death [Fatal]
  - Off label use [Fatal]
  - Off label use [Unknown]
